FAERS Safety Report 10045929 (Version 1)
Quarter: 2014Q1

REPORT INFORMATION
  Report Type: Spontaneous
  Country: US (occurrence: US)
  Receive Date: 20140329
  Receipt Date: 20140329
  Transmission Date: 20141002
  Serious: No
  Sender: FDA-Public Use
  Company Number: US-TEVA-472370USA

PATIENT
  Age: 28 Year
  Sex: Female
  Weight: 54.48 kg

DRUGS (2)
  1. PLAN B ONE-STEP [Suspect]
     Indication: POST COITAL CONTRACEPTION
     Dosage: 1.5 MILLIGRAM DAILY;
     Route: 048
     Dates: start: 20130220, end: 20130220
  2. LANTUS [Concomitant]
     Indication: DIABETES MELLITUS
     Dosage: 20 UNITS BID

REACTIONS (1)
  - Infertility [Not Recovered/Not Resolved]
